FAERS Safety Report 12267771 (Version 1)
Quarter: 2016Q2

REPORT INFORMATION
  Report Type: Spontaneous
  Country: TW (occurrence: TW)
  Receive Date: 20160414
  Receipt Date: 20160414
  Transmission Date: 20160815
  Serious: Yes (Hospitalization)
  Sender: FDA-Public Use
  Company Number: TW-MYLANLABS-2016M1015307

PATIENT

DRUGS (6)
  1. BACLOFEN. [Suspect]
     Active Substance: BACLOFEN
     Indication: BACK PAIN
     Route: 048
  2. PARACETAMOL [Concomitant]
     Active Substance: ACETAMINOPHEN
     Route: 065
  3. FUROSEMIDE. [Concomitant]
     Active Substance: FUROSEMIDE
     Route: 065
  4. AMLODIPINE [Concomitant]
     Active Substance: AMLODIPINE BESYLATE
     Route: 065
  5. ACARBOSE. [Concomitant]
     Active Substance: ACARBOSE
     Route: 065
  6. VALSARTAN. [Concomitant]
     Active Substance: VALSARTAN
     Route: 065

REACTIONS (1)
  - Toxic encephalopathy [Recovered/Resolved]
